FAERS Safety Report 10277973 (Version 1)
Quarter: 2014Q3

REPORT INFORMATION
  Report Type: Spontaneous
  Country: IN (occurrence: IN)
  Receive Date: 20140704
  Receipt Date: 20140704
  Transmission Date: 20150326
  Serious: Yes (Death, Hospitalization)
  Sender: FDA-Public Use
  Company Number: IN-MERCK-1406IND012541

PATIENT
  Age: 54 Year
  Sex: Male

DRUGS (1)
  1. VIRAFERONPEG [Suspect]
     Active Substance: PEGINTERFERON ALFA-2B
     Indication: HEPATITIS C
     Dosage: 100 MCG, 1/WEEK
     Route: 058
     Dates: start: 20140425, end: 201406

REACTIONS (3)
  - Dyspnoea [Fatal]
  - Pyrexia [Fatal]
  - Aphagia [Fatal]

NARRATIVE: CASE EVENT DATE: 20140620
